FAERS Safety Report 5594163-2 (Version None)
Quarter: 2008Q1

REPORT INFORMATION
  Report Type: 
  Country: None (occurrence: None)
  Receive Date: 20080115
  Receipt Date: 20080102
  Transmission Date: 20080703
  Serious: Yes (Other)
  Sender: FDA-Public Use
  Company Number: 43924

PATIENT
  Age: 78 Year
  Sex: Female
  Weight: 49.8957 kg

DRUGS (1)
  1. ACETYLCYSTEINE [Suspect]
     Indication: PROPHYLAXIS
     Dosage: 3ML - ONE DOSE - ^INJECTED^
     Route: 042
     Dates: start: 20071228

REACTIONS (2)
  - INCORRECT ROUTE OF DRUG ADMINISTRATION [None]
  - MEDICATION ERROR [None]
